FAERS Safety Report 7469577-6 (Version None)
Quarter: 2011Q2

REPORT INFORMATION
  Report Type: 
  Country: None (occurrence: None)
  Receive Date: 20110510
  Receipt Date: 20100110
  Transmission Date: 20111010
  Serious: Yes (Death, Hospitalization, Other)
  Sender: FDA-Public Use
  Company Number: US-BAYER-201010610NA

PATIENT
  Age: 72 Year
  Sex: Male
  Weight: 74.83 kg

DRUGS (19)
  1. HEPARIN [Concomitant]
     Dosage: 5000-26,000 UNITS BOLUS, 800-1400 UNITS/HR
     Route: 042
     Dates: start: 19990916
  2. NITROGLYCERIN [Concomitant]
     Dosage: 8-21CC
     Route: 042
     Dates: start: 19990920
  3. LASIX [Concomitant]
     Dosage: UNK
     Route: 042
     Dates: start: 19990916, end: 19990919
  4. ACCUPRIL [Concomitant]
     Dosage: UNK
     Route: 048
     Dates: start: 19990916
  5. VANCOMYCIN [Concomitant]
     Dosage: 1 GRAM
     Route: 042
     Dates: start: 19990920
  6. AMICAR [Concomitant]
     Dosage: 1 GRAM
     Route: 042
     Dates: start: 19990920
  7. TRASYLOL [Suspect]
     Indication: AORTIC VALVE REPLACEMENT
  8. DIABETA [Concomitant]
     Dosage: 2.5 MG, QD
     Route: 048
     Dates: start: 19990914
  9. CIPRO [Concomitant]
     Dosage: UNK
     Route: 042
     Dates: start: 19990916
  10. ACETYLSALICYLIC ACID SRT [Concomitant]
     Dosage: 325 MG, QD
     Route: 048
     Dates: start: 19990914, end: 19991201
  11. ZOSYN [Concomitant]
     Dosage: 2.25 GRAM EVERY 8 HOURS
     Route: 042
  12. MILRINONE [Concomitant]
     Dosage: UNK
     Route: 042
     Dates: start: 19990920
  13. TRASYLOL [Suspect]
     Indication: CORONARY ARTERY BYPASS
     Dosage: TEST DOSE 1ML NO LOADING DOSE
     Route: 042
     Dates: start: 19990920, end: 19990920
  14. DIGOXIN [Concomitant]
     Dosage: .25-0.5 MG
     Route: 042
     Dates: start: 19990916, end: 19991201
  15. PROCARDIA [Concomitant]
  16. ZANTAC [Concomitant]
     Dosage: UNK
     Route: 042
     Dates: start: 19990918
  17. PRINZIDE [Concomitant]
     Dosage: UNK
     Route: 048
     Dates: start: 19990914
  18. DOPAMINE HCL [Concomitant]
     Dosage: 5/-15MCG/KG/MINUTE
     Route: 042
     Dates: start: 19990916
  19. CARDIZEM [Concomitant]
     Dosage: 10-20MG INTERMITTENTLY
     Route: 042
     Dates: start: 19990916

REACTIONS (11)
  - DEATH [None]
  - INJURY [None]
  - ANHEDONIA [None]
  - UNEVALUABLE EVENT [None]
  - MYOCARDIAL INFARCTION [None]
  - PAIN [None]
  - CEREBROVASCULAR ACCIDENT [None]
  - ANXIETY [None]
  - FEAR [None]
  - DEPRESSION [None]
  - RENAL FAILURE [None]
